FAERS Safety Report 8726709 (Version 3)
Quarter: 2012Q4

REPORT INFORMATION
  Report Type: 
  Country: US (occurrence: US)
  Receive Date: 20120816
  Receipt Date: 20120831
  Transmission Date: 20130627
  Serious: Yes (Life-Threatening, Hospitalization, Other)
  Sender: FDA-Public Use
  Company Number: US-ALEXION-A201201513

PATIENT
  Sex: Male

DRUGS (16)
  1. SOLIRIS 300MG [Suspect]
     Indication: PAROXYSMAL NOCTURNAL HAEMOGLOBINURIA
     Dosage: 600 mg, qw x 4
     Route: 042
     Dates: start: 20110802
  2. SOLIRIS 300MG [Suspect]
     Dosage: 900 mg, q2w
     Route: 042
     Dates: start: 201109
  3. SOLIRIS 300MG [Suspect]
     Dosage: 900 mg, q 12 days
     Route: 042
  4. ASPIRIN [Concomitant]
     Dosage: 325 mg, UNK
  5. DANAZOL [Concomitant]
     Dosage: 200 mg, UNK
  6. FOLIC ACID [Concomitant]
     Dosage: 1 mg, UNK
  7. IRON [Concomitant]
     Dosage: 325 mg (65 mg iron), UNK
  8. LATANOPROST [Concomitant]
     Dosage: UNK
     Route: 031
  9. MULTIVITAMIN [Concomitant]
     Dosage: UNK
     Route: 048
  10. NITROGLYCERIN [Concomitant]
     Dosage: 0.4 mg, UNK
     Route: 060
  11. PRAVASTATIN [Concomitant]
     Dosage: 20 mg, UNK
  12. PROCHLORPERAZINE MALEATE [Concomitant]
     Dosage: 10 mg, UNK
  13. SOTALOL [Concomitant]
     Dosage: 160 mg, UNK
  14. SPIRONOLACTONE [Concomitant]
     Dosage: 50 mg, UNK
  15. VITAMIN B12 [Concomitant]
     Dosage: 1000 ?g, UNK
  16. VITAMIN B12 [Concomitant]
     Dosage: 100 ?g, UNK

REACTIONS (5)
  - Myocardial infarction [Recovered/Resolved]
  - Atrial flutter [Recovered/Resolved]
  - Haemolysis [Recovered/Resolved]
  - Leukopenia [Unknown]
  - Haematoma [Recovering/Resolving]
